FAERS Safety Report 18977777 (Version 1)
Quarter: 2021Q1

REPORT INFORMATION
  Report Type: Spontaneous
  Country: US (occurrence: US)
  Receive Date: 20210306
  Receipt Date: 20210306
  Transmission Date: 20210420
  Serious: No
  Sender: FDA-Public Use
  Company Number: US-SUN PHARMACEUTICAL INDUSTRIES LTD-2020R1-272689

PATIENT
  Sex: Female

DRUGS (1)
  1. CEQUA [Suspect]
     Active Substance: CYCLOSPORINE
     Indication: INFLAMMATION
     Dosage: 1 DROP, BID (1 DROP PER EYE 2X/DAY)
     Route: 047
     Dates: start: 20201130, end: 20201204

REACTIONS (1)
  - Eye inflammation [Recovered/Resolved]
